FAERS Safety Report 5700613-0 (Version None)
Quarter: 2008Q2

REPORT INFORMATION
  Report Type: 
  Country: None (occurrence: None)
  Receive Date: 20080409
  Receipt Date: 20080409
  Transmission Date: 20081010
  Serious: No
  Sender: FDA-Public Use
  Company Number: None

PATIENT
  Sex: Female

DRUGS (2)
  1. BUDEPRION XL 300MG [Suspect]
     Indication: ANXIETY
     Dosage: 300MG, POQDAY
     Route: 048
     Dates: start: 20070101
  2. BUDEPRION XL 300MG [Suspect]
     Indication: DEPRESSION
     Dosage: 300MG, POQDAY
     Route: 048
     Dates: start: 20070101

REACTIONS (1)
  - PHARMACEUTICAL PRODUCT COMPLAINT [None]
